FAERS Safety Report 9471855 (Version 2)
Quarter: 2014Q1

REPORT INFORMATION
  Report Type: Report from Study
  Country: DE (occurrence: DE)
  Receive Date: 20130822
  Receipt Date: 20140220
  Transmission Date: 20141002
  Serious: Yes (Hospitalization)
  Sender: FDA-Public Use
  Company Number: DE-AMGEN-DEUCT2013058765

PATIENT
  Age: 69 Year
  Sex: Female

DRUGS (11)
  1. ETANERCEPT [Suspect]
     Indication: RHEUMATOID ARTHRITIS
     Dosage: 50 MG, WEEKLY
     Route: 065
  2. METHOTREXATE SODIUM [Concomitant]
     Dosage: 22.5 MG, WEEKLY
  3. PREDNISOLON                        /00016201/ [Concomitant]
     Dosage: UNK
  4. FOLIC ACID [Concomitant]
     Dosage: UNK
  5. PRAVASTATIN [Concomitant]
     Dosage: UNK
  6. L-THYROXIN [Concomitant]
     Dosage: UNK
  7. CALCILAC                           /00944201/ [Concomitant]
     Dosage: UNK
  8. IBUPROFEN [Concomitant]
     Dosage: UNK
  9. SIMVASTATIN [Concomitant]
     Dosage: UNK
  10. PANTOZOL                           /01263204/ [Concomitant]
     Dosage: UNK
  11. FOSAMAX [Concomitant]
     Dosage: UNK

REACTIONS (1)
  - Infection [Not Recovered/Not Resolved]
